FAERS Safety Report 17675514 (Version 1)
Quarter: 2020Q2

REPORT INFORMATION
  Report Type: Spontaneous
  Country: US (occurrence: US)
  Receive Date: 20200416
  Receipt Date: 20200416
  Transmission Date: 20200714
  Serious: No
  Sender: FDA-Public Use
  Company Number: US-SUNOVION-2020SUN001136

PATIENT
  Sex: Female

DRUGS (1)
  1. LATUDA [Suspect]
     Active Substance: LURASIDONE HYDROCHLORIDE
     Dosage: UNK
     Route: 048

REACTIONS (8)
  - Feeling abnormal [Unknown]
  - Mental disorder [Unknown]
  - Asocial behaviour [Unknown]
  - Depressed mood [Unknown]
  - Lethargy [Unknown]
  - Anger [Unknown]
  - Apathy [Unknown]
  - Feelings of worthlessness [Unknown]
